FAERS Safety Report 7606723 (Version 2)
Quarter: 2012Q4

REPORT INFORMATION
  Report Type: 
  Country: US (occurrence: US)
  Receive Date: 20100927
  Receipt Date: 20120914
  Transmission Date: 20130627
  Serious: No
  Sender: FDA-Public Use
  Company Number: US-BIOGENIDEC-2010BI031598

PATIENT
  Age: 42 Year
  Sex: Female

DRUGS (1)
  1. TYSABRI [Suspect]
     Indication: MULTIPLE SCLEROSIS
     Route: 042
     Dates: start: 20090408

REACTIONS (5)
  - Multiple sclerosis relapse [Not Recovered/Not Resolved]
  - Headache [Recovered/Resolved]
  - Confusional state [Recovered/Resolved]
  - Pain [Unknown]
  - Anxiety [Unknown]
